FAERS Safety Report 7938238-9 (Version None)
Quarter: 2011Q4

REPORT INFORMATION
  Report Type: 
  Country: None (occurrence: None)
  Receive Date: 20111123
  Receipt Date: 20111115
  Transmission Date: 20120403
  Serious: Yes (Other)
  Sender: FDA-Public Use
  Company Number: CHPA2011US016101

PATIENT
  Age: 47 Year
  Sex: Male

DRUGS (4)
  1. NICOTINE [Suspect]
     Indication: SMOKING CESSATION THERAPY
     Dosage: 14 MG, QD
     Route: 062
     Dates: start: 20111024
  2. ALBUTEROL [Concomitant]
     Indication: ASTHMA
     Dosage: UNK, UNK
  3. DRUG THERAPY NOS [Concomitant]
     Indication: PAIN
     Dosage: UNK, UNK
     Route: 048
  4. DEPAKOTE [Concomitant]
     Indication: CONVULSION
     Dosage: 1000 MG, BID
     Route: 048

REACTIONS (5)
  - OVERDOSE [None]
  - EPILEPSY [None]
  - TREATMENT NONCOMPLIANCE [None]
  - UNDERDOSE [None]
  - CONVULSION [None]
